FAERS Safety Report 7399257-7 (Version None)
Quarter: 2011Q1

REPORT INFORMATION
  Report Type: 
  Country: None (occurrence: None)
  Receive Date: 20110329
  Receipt Date: 20110314
  Transmission Date: 20110831
  Serious: Yes (Other)
  Sender: FDA-Public Use
  Company Number: EU-2011-10040

PATIENT
  Sex: Female

DRUGS (1)
  1. SAMSCA [Suspect]
     Dosage: 15 MG MILLIGRAM(S), SINGLE, ORAL
     Route: 048
     Dates: start: 20110218, end: 20110218

REACTIONS (2)
  - CONFUSIONAL STATE [None]
  - RAPID CORRECTION OF HYPONATRAEMIA [None]
